FAERS Safety Report 7643302-8 (Version None)
Quarter: 2011Q3

REPORT INFORMATION
  Report Type: 
  Country: None (occurrence: None)
  Receive Date: 20110729
  Receipt Date: 20110719
  Transmission Date: 20111222
  Serious: No
  Sender: FDA-Public Use
  Company Number: US-BIOGENIDEC-2011BI027491

PATIENT
  Age: 48 Year
  Sex: Female

DRUGS (1)
  1. TYSABRI [Suspect]
     Indication: MULTIPLE SCLEROSIS
     Route: 042
     Dates: start: 20090306

REACTIONS (12)
  - CENTRAL NERVOUS SYSTEM LESION [None]
  - MENOPAUSE [None]
  - FEELING ABNORMAL [None]
  - CHEST PAIN [None]
  - PAIN [None]
  - APHASIA [None]
  - GENERAL SYMPTOM [None]
  - SPEECH DISORDER [None]
  - MEMORY IMPAIRMENT [None]
  - COGNITIVE DISORDER [None]
  - DEPRESSION [None]
  - ABDOMINAL PAIN [None]
